FAERS Safety Report 12963114 (Version 2)
Quarter: 2016Q4

REPORT INFORMATION
  Report Type: Spontaneous
  Country: JP (occurrence: JP)
  Receive Date: 20161122
  Receipt Date: 20161209
  Transmission Date: 20170207
  Serious: Yes (Other)
  Sender: FDA-Public Use
  Company Number: JP-TAKEDA-2016TJP024788

PATIENT
  Age: 79 Year
  Sex: Female
  Weight: 42 kg

DRUGS (7)
  1. VOGLIBOSE [Concomitant]
     Active Substance: VOGLIBOSE
     Indication: DIABETES MELLITUS
     Dosage: 0.3 MG, TID
     Route: 048
     Dates: end: 20161014
  2. DEPAKENE [Concomitant]
     Active Substance: VALPROIC ACID
     Dosage: 200 MG, QD
     Route: 048
  3. TANATRIL [Concomitant]
     Active Substance: IMIDAPRIL
     Indication: HYPERTENSION
     Dosage: 5 MG, QD
     Route: 048
     Dates: end: 20161027
  4. METACT [Suspect]
     Active Substance: METFORMIN HYDROCHLORIDE\PIOGLITAZONE HYDROCHLORIDE
     Indication: DIABETES MELLITUS
     Dosage: UNK
     Route: 048
     Dates: end: 20161013
  5. CARCOPA [Concomitant]
     Active Substance: CARBIDOPA\LEVODOPA
     Indication: DEMENTIA WITH LEWY BODIES
     Dosage: 100 MG, BID
     Route: 048
  6. DONEPEZIL HYDROCHLORIDE. [Concomitant]
     Active Substance: DONEPEZIL HYDROCHLORIDE
     Indication: DEMENTIA WITH LEWY BODIES
     Dosage: 10 MG, QD
     Route: 048
  7. MAGNESIUM OXIDE. [Concomitant]
     Active Substance: MAGNESIUM OXIDE
     Indication: CONSTIPATION
     Dosage: 330 MG, BID
     Route: 048

REACTIONS (2)
  - Generalised oedema [Recovered/Resolved]
  - Cardiac failure [Recovered/Resolved]

NARRATIVE: CASE EVENT DATE: 201512
